FAERS Safety Report 19351530 (Version 3)
Quarter: 2022Q4

REPORT INFORMATION
  Report Type: Spontaneous
  Country: US (occurrence: US)
  Receive Date: 20210531
  Receipt Date: 20221202
  Transmission Date: 20230112
  Serious: Yes (Congenital Anomaly, Other)
  Sender: FDA-Public Use
  Company Number: US-JNJFOC-20210553125

PATIENT
  Age: 0 Year
  Sex: Male
  Weight: 2.286 kg

DRUGS (10)
  1. STELARA [Suspect]
     Active Substance: USTEKINUMAB
     Indication: Crohn^s disease
     Route: 064
  2. BENADRYL [Concomitant]
     Active Substance: DIPHENHYDRAMINE HYDROCHLORIDE
     Indication: Nasopharyngitis
     Route: 064
     Dates: start: 20180501, end: 20180530
  3. DHA CAL [Concomitant]
     Route: 064
     Dates: start: 20150115, end: 20180630
  4. FLONASE ALLERGY RELIEF [Concomitant]
     Active Substance: FLUTICASONE PROPIONATE
     Indication: Nasopharyngitis
     Route: 064
     Dates: start: 20180515, end: 20180517
  5. MAGNESIUM [Concomitant]
     Active Substance: MAGNESIUM
     Indication: Sleep disorder
     Route: 064
     Dates: start: 20170923, end: 20180630
  6. PRENATAL VITAMINS [ASCORBIC ACID;BIOTIN;MINERALS NOS;NICOTINIC ACID;RE [Concomitant]
     Route: 064
     Dates: start: 20150115, end: 20180630
  7. PROGESTERONE [Concomitant]
     Active Substance: PROGESTERONE
     Route: 064
     Dates: start: 20171026, end: 20171220
  8. SYNTHROID [Concomitant]
     Active Substance: LEVOTHYROXINE SODIUM
     Indication: Hypothyroidism
     Route: 064
     Dates: start: 20170923, end: 20180630
  9. TYLENOL [Concomitant]
     Active Substance: ACETAMINOPHEN
     Indication: Pain
     Route: 064
     Dates: start: 20170923, end: 20180630
  10. ERGOCALCIFEROL [Concomitant]
     Active Substance: ERGOCALCIFEROL
     Route: 064
     Dates: start: 20170923, end: 20180630

REACTIONS (3)
  - Hydrocele [Unknown]
  - Low birth weight baby [Unknown]
  - Foetal exposure during pregnancy [Recovered/Resolved]

NARRATIVE: CASE EVENT DATE: 20180630
